FAERS Safety Report 22259360 (Version 2)
Quarter: 2023Q2

REPORT INFORMATION
  Report Type: Spontaneous
  Country: FR (occurrence: FR)
  Receive Date: 20230427
  Receipt Date: 20230602
  Transmission Date: 20230722
  Serious: Yes (Death, Hospitalization, Other)
  Sender: FDA-Public Use
  Company Number: FR-AMGEN-FRASP2023069612

PATIENT
  Age: 60 Year
  Sex: Female
  Weight: 70 kg

DRUGS (8)
  1. LUMAKRAS [Suspect]
     Active Substance: SOTORASIB
     Indication: Lung adenocarcinoma
     Dosage: 960 MILLIGRAM, QD
     Route: 048
     Dates: start: 20220301, end: 20220530
  2. CARBOPLATIN [Concomitant]
     Active Substance: CARBOPLATIN
  3. PEMETREXED [Concomitant]
     Active Substance: PEMETREXED
  4. PEMBROLIZUMAB [Concomitant]
     Active Substance: PEMBROLIZUMAB
  5. XARELTO [Concomitant]
     Active Substance: RIVAROXABAN
  6. LORMETAZEPAM [Concomitant]
     Active Substance: LORMETAZEPAM
  7. BROMAZEPAM [Concomitant]
     Active Substance: BROMAZEPAM
  8. ACETAMINOPHEN [Concomitant]
     Active Substance: ACETAMINOPHEN

REACTIONS (4)
  - Diarrhoea [Recovered/Resolved]
  - Lung adenocarcinoma [Fatal]
  - Cholestasis [Unknown]
  - Cell death [Unknown]

NARRATIVE: CASE EVENT DATE: 20220328
